FAERS Safety Report 6186579-0 (Version None)
Quarter: 2009Q2

REPORT INFORMATION
  Report Type: 
  Country: None (occurrence: None)
  Receive Date: 20090507
  Receipt Date: 20090507
  Transmission Date: 20091009
  Serious: Yes (Other)
  Sender: FDA-Public Use
  Company Number: None

PATIENT
  Sex: Female
  Weight: 74.8435 kg

DRUGS (1)
  1. TRAMADOL HCL [Suspect]
     Indication: PAIN
     Dosage: ONE TABLET EVERY 6 HOURS PO
     Route: 048
     Dates: start: 20090428, end: 20090428

REACTIONS (4)
  - DEHYDRATION [None]
  - HEADACHE [None]
  - MENTAL DISORDER [None]
  - VOMITING [None]
